FAERS Safety Report 20719403 (Version 1)
Quarter: 2022Q2

REPORT INFORMATION
  Report Type: Spontaneous
  Country: US (occurrence: US)
  Receive Date: 20220418
  Receipt Date: 20220418
  Transmission Date: 20220720
  Serious: Yes (Death, Other)
  Sender: FDA-Public Use
  Company Number: US-SA-SAC20220415000160

PATIENT
  Age: 82 Year

DRUGS (1)
  1. ZANTAC [Suspect]
     Active Substance: RANITIDINE HYDROCHLORIDE
     Dosage: UNK, QD
     Dates: start: 201602, end: 202006

REACTIONS (2)
  - Gastric cancer [Fatal]
  - Appendix cancer [Fatal]

NARRATIVE: CASE EVENT DATE: 20200611
